FAERS Safety Report 8347619-3 (Version None)
Quarter: 2012Q2

REPORT INFORMATION
  Report Type: 
  Country: None (occurrence: None)
  Receive Date: 20120509
  Receipt Date: 20120425
  Transmission Date: 20120825
  Serious: Yes (Other)
  Sender: FDA-Public Use
  Company Number: US-ELI_LILLY_AND_COMPANY-US201204009550

PATIENT
  Age: 86 Year
  Sex: Female

DRUGS (10)
  1. REGLAN [Concomitant]
  2. ZYRTEC [Concomitant]
  3. REQUIP [Concomitant]
     Dosage: 4 MG, UNK
  4. SINGULAIR [Concomitant]
  5. ENSURE                             /06184901/ [Concomitant]
  6. LIDODERM [Concomitant]
  7. CARAFATE                                /USA/ [Concomitant]
  8. MELATONIN [Concomitant]
  9. CYMBALTA [Suspect]
     Dosage: 30 MG, QD
  10. CYMBALTA [Suspect]
     Dosage: 60 MG, QD
     Dates: start: 20110601

REACTIONS (1)
  - GASTROSTOMY TUBE INSERTION [None]
